FAERS Safety Report 16310048 (Version 2)
Quarter: 2019Q2

REPORT INFORMATION
  Report Type: Spontaneous
  Country: JP (occurrence: JP)
  Receive Date: 20190514
  Receipt Date: 20190610
  Transmission Date: 20190711
  Serious: Yes (Death, Hospitalization, Other)
  Sender: FDA-Public Use
  Company Number: JP-ELI_LILLY_AND_COMPANY-JP201904011044

PATIENT
  Age: 85 Year
  Sex: Female

DRUGS (16)
  1. OLUMIANT [Suspect]
     Active Substance: BARICITINIB
     Indication: RHEUMATOID ARTHRITIS
     Dosage: 4 MG, DAILY
     Route: 048
  2. LULICON [Concomitant]
     Active Substance: LULICONAZOLE
  3. FLAVITAN [Concomitant]
     Active Substance: FLAVIN ADENINE DINUCLEOTIDE
  4. KEFRAL [Concomitant]
     Active Substance: CEFACLOR
  5. CELECOX [Concomitant]
     Active Substance: CELECOXIB
     Dosage: 200 MG, BID
  6. BAKTAR [Suspect]
     Active Substance: SULFAMETHOXAZOLE\TRIMETHOPRIM
     Indication: PNEUMOCYSTIS JIROVECII PNEUMONIA
     Dosage: UNK
     Route: 065
  7. RHEUMATREX [Concomitant]
     Active Substance: METHOTREXATE SODIUM
     Dosage: 8 MG, WEEKLY (1/W)
  8. TANATRIL [Concomitant]
     Active Substance: IMIDAPRIL
  9. NATRIX [Concomitant]
     Active Substance: INDAPAMIDE
  10. CONIEL [Concomitant]
     Active Substance: BENIDIPINE HYDROCHLORIDE
  11. PREDNISOLONE. [Concomitant]
     Active Substance: PREDNISOLONE
     Dosage: 4 MG, DAILY
  12. LANSOPRAZOLE. [Concomitant]
     Active Substance: LANSOPRAZOLE
     Dosage: 15 MG, DAILY
  13. THYRADIN S [Concomitant]
     Active Substance: LEVOTHYROXINE SODIUM
  14. CILOSTAZOL. [Concomitant]
     Active Substance: CILOSTAZOL
  15. PRAVASTATIN SODIUM. [Concomitant]
     Active Substance: PRAVASTATIN SODIUM
  16. ENTECAVIR. [Concomitant]
     Active Substance: ENTECAVIR

REACTIONS (3)
  - Pneumocystis jirovecii pneumonia [Fatal]
  - Hyperkalaemia [Unknown]
  - Cardiac failure congestive [Unknown]

NARRATIVE: CASE EVENT DATE: 20190413
